FAERS Safety Report 4551487-5 (Version None)
Quarter: 2005Q1

REPORT INFORMATION
  Report Type: 
  Country: None (occurrence: None)
  Receive Date: 20050110
  Receipt Date: 20041230
  Transmission Date: 20050727
  Serious: Yes (Other)
  Sender: FDA-Public Use
  Company Number: 2004122107

PATIENT
  Sex: Male

DRUGS (1)
  1. LISTERINE ANTISEPTIC MOUTHWASH (MENTHOL, METHYL SALICLATE, EUCALYPTOL, [Suspect]
     Indication: DENTAL DISORDER PROPHYLAXIS
     Dosage: ORAL TOPICAL
     Route: 048
     Dates: start: 19840101

REACTIONS (1)
  - CARDIAC OPERATION [None]
